FAERS Safety Report 7231464-6 (Version None)
Quarter: 2011Q1

REPORT INFORMATION
  Report Type: 
  Country: None (occurrence: None)
  Receive Date: 20110118
  Receipt Date: 20110113
  Transmission Date: 20110831
  Serious: Yes (Other)
  Sender: FDA-Public Use
  Company Number: US-PFIZER INC-2010103930

PATIENT
  Sex: Female
  Weight: 63.5 kg

DRUGS (17)
  1. NAMENDA [Concomitant]
     Dosage: 10 MG, 2X/DAY
  2. FUROSEMIDE [Concomitant]
     Dosage: 20 MG, DAILY
  3. ADVAIR HFA [Concomitant]
     Indication: ASTHMA
     Dosage: UNK
  4. WARFARIN [Concomitant]
     Dosage: 6 MG, DAILY
  5. EVISTA [Concomitant]
     Dosage: 60 MG, DAILY
  6. LEVOTHYROXINE [Concomitant]
     Dosage: 100 UG, DAILY
  7. LIPITOR [Suspect]
     Indication: PROPHYLAXIS
     Dosage: 5 MG, DAILY
     Route: 048
  8. PRISTIQ [Suspect]
     Dosage: STARTED TO WEAN BY TAKING 1/2 50 MG
     Route: 048
     Dates: start: 20100805
  9. CALCIUM [Concomitant]
     Dosage: UNK, DAILY
  10. VITAMIN D [Concomitant]
     Dosage: 1000 IU, DAILY
  11. PROVENTIL GENTLEHALER [Concomitant]
     Dosage: UNK, AS NEEDED
  12. BENICAR HCT [Concomitant]
     Dosage: 20/12.5 MG 1/2 TABLET DAILY
  13. PRISTIQ [Suspect]
     Dosage: 50 MG, DAILY
     Route: 048
     Dates: start: 20100101, end: 20100804
  14. LANOXIN [Concomitant]
     Dosage: 0.125 MG, 3X/WEEK
  15. FISH OIL [Concomitant]
     Dosage: UNK, DAILY
  16. MULTIVIT [Concomitant]
     Dosage: UNK, DAILY
  17. POTASSIUM [Concomitant]
     Dosage: 10 MG, DAILY

REACTIONS (4)
  - DEPRESSION [None]
  - PSYCHOMOTOR HYPERACTIVITY [None]
  - HEADACHE [None]
  - INSOMNIA [None]
